FAERS Safety Report 14967484 (Version 1)
Quarter: 2018Q2

REPORT INFORMATION
  Report Type: Spontaneous
  Country: US (occurrence: US)
  Receive Date: 20180511
  Receipt Date: 20180511
  Transmission Date: 20180711
  Serious: Yes (Disabling)
  Sender: FDA-Public Use
  Company Number: None

PATIENT
  Age: 6 Year
  Sex: Female
  Weight: 40.05 kg

DRUGS (1)
  1. MIRALAX [Suspect]
     Active Substance: POLYETHYLENE GLYCOL 3350
     Indication: CONSTIPATION
     Route: 048
     Dates: start: 20130103, end: 20130401

REACTIONS (5)
  - Anxiety [None]
  - Tic [None]
  - Depression [None]
  - Insomnia [None]
  - Stress [None]

NARRATIVE: CASE EVENT DATE: 20130103
